FAERS Safety Report 14380849 (Version 1)
Quarter: 2018Q1

REPORT INFORMATION
  Report Type: Report from Study
  Country: US (occurrence: US)
  Receive Date: 20180112
  Receipt Date: 20180112
  Transmission Date: 20180509
  Serious: Yes (Other)
  Sender: FDA-Public Use
  Company Number: US-BAYER-2018-002898

PATIENT
  Age: 72 Year
  Sex: Male

DRUGS (3)
  1. CEFEPIME [Suspect]
     Active Substance: CEFEPIME HYDROCHLORIDE
     Dosage: UNK
     Route: 042
  2. FLUCONAZOLE. [Concomitant]
     Active Substance: FLUCONAZOLE
     Dosage: UNK
  3. CIPROFLOXACIN. [Suspect]
     Active Substance: CIPROFLOXACIN
     Dosage: UNK
     Route: 048

REACTIONS (7)
  - Facial paralysis [None]
  - Pathogen resistance [None]
  - Multiple-drug resistance [None]
  - Pharyngeal abscess [None]
  - Cranial nerve paralysis [None]
  - Treatment failure [None]
  - Vocal cord paralysis [None]
